FAERS Safety Report 19523265 (Version 2)
Quarter: 2022Q3

REPORT INFORMATION
  Report Type: Spontaneous
  Country: US (occurrence: US)
  Receive Date: 20210712
  Receipt Date: 20220713
  Transmission Date: 20221027
  Serious: Yes (Other)
  Sender: FDA-Public Use
  Company Number: US-PFIZER INC-2021806541

PATIENT
  Age: 58 Year
  Sex: Female
  Weight: 78.47 kg

DRUGS (8)
  1. EPLERENONE [Interacting]
     Active Substance: EPLERENONE
     Indication: Hyperaldosteronism
     Dosage: 25 MG
     Dates: start: 2015, end: 202105
  2. EPLERENONE [Interacting]
     Active Substance: EPLERENONE
     Indication: Hyperplasia adrenal
     Dosage: 50 MG, 1X/DAY1 TABLET BY MOUTH ONCE A DAY
     Route: 048
     Dates: end: 20210603
  3. EPLERENONE [Interacting]
     Active Substance: EPLERENONE
     Indication: Hypertension
  4. VERAPAMIL HCL [Interacting]
     Active Substance: VERAPAMIL HYDROCHLORIDE
     Indication: Ventricular tachycardia
     Dosage: 120 MG, 1X/DAY, BY MOUTH ONCE A DAY
     Route: 048
     Dates: start: 2014
  5. VERAPAMIL HCL [Interacting]
     Active Substance: VERAPAMIL HYDROCHLORIDE
     Indication: Blood pressure measurement
     Dosage: 120 MG 2 TABLETS BY MOUTH ONCE A DAY
     Route: 048
  6. VERAPAMIL HCL [Interacting]
     Active Substance: VERAPAMIL HYDROCHLORIDE
     Dosage: 180 MG
     Dates: start: 2014, end: 20210603
  7. HYDRALAZINE [Concomitant]
     Active Substance: HYDRALAZINE HYDROCHLORIDE
     Indication: Hypertension
     Dosage: UNK
  8. HYDRALAZINE [Concomitant]
     Active Substance: HYDRALAZINE HYDROCHLORIDE
     Dosage: UNK

REACTIONS (15)
  - Renal failure [Unknown]
  - Urinary retention [Recovering/Resolving]
  - Blood pressure increased [Unknown]
  - Renal pain [Recovering/Resolving]
  - Drug interaction [Unknown]
  - Chromaturia [Not Recovered/Not Resolved]
  - Ocular icterus [Recovered/Resolved]
  - Blood bilirubin increased [Unknown]
  - Renal cyst [Unknown]
  - Nocturia [Recovering/Resolving]
  - Urinary casts [Unknown]
  - Back pain [Unknown]
  - Weight decreased [Unknown]
  - Body height increased [Unknown]
  - Off label use [Unknown]

NARRATIVE: CASE EVENT DATE: 20210501
